FAERS Safety Report 4535298-2 (Version None)
Quarter: 2004Q4

REPORT INFORMATION
  Report Type: 
  Country: None (occurrence: None)
  Receive Date: 20041214
  Receipt Date: 20040927
  Transmission Date: 20050328
  Serious: No
  Sender: FDA-Public Use
  Company Number: 2004237538US

PATIENT
  Age: 83 Year
  Sex: Female
  Weight: 74.8 kg

DRUGS (9)
  1. BEXTRA [Suspect]
     Indication: ARTHRITIS
     Dosage: 20 MG, QD, ORAL
     Route: 048
     Dates: start: 20040924
  2. SYNTHROID [Concomitant]
  3. PRAVACHOL [Concomitant]
  4. PRILOSEC [Concomitant]
  5. NORVASC [Concomitant]
  6. FUROSEMIDE [Concomitant]
  7. GLIPIZIDE [Concomitant]
  8. SINGULAIR [Concomitant]
  9. LISINOPRIL [Concomitant]

REACTIONS (1)
  - ARTHRALGIA [None]
